FAERS Safety Report 16274225 (Version 1)
Quarter: 2019Q2

REPORT INFORMATION
  Report Type: Spontaneous
  Country: US (occurrence: US)
  Receive Date: 20190504
  Receipt Date: 20190504
  Transmission Date: 20190711
  Serious: Yes (Other)
  Sender: FDA-Public Use
  Company Number: US-TEVA-2019-US-1043897

PATIENT
  Sex: Female

DRUGS (1)
  1. WARFARIN SODIUM TABLETS [Suspect]
     Active Substance: WARFARIN SODIUM
     Route: 065
     Dates: start: 2009

REACTIONS (3)
  - Vitamin D decreased [Unknown]
  - Clostridium difficile infection [Unknown]
  - Drug level changed [Unknown]

NARRATIVE: CASE EVENT DATE: 201901
